FAERS Safety Report 10305202 (Version 2)
Quarter: 2014Q3

REPORT INFORMATION
  Report Type: Spontaneous
  Country: US (occurrence: US)
  Receive Date: 20140715
  Receipt Date: 20140731
  Transmission Date: 20150326
  Serious: No
  Sender: FDA-Public Use
  Company Number: US-009507513-1407USA005100

PATIENT
  Sex: Female
  Weight: 74.83 kg

DRUGS (7)
  1. OXYTROL FOR WOMEN [Suspect]
     Active Substance: OXYBUTYNIN
     Indication: HYPERTONIC BLADDER
  2. OXYTROL FOR WOMEN [Suspect]
     Active Substance: OXYBUTYNIN
     Indication: NOCTURIA
     Dosage: 1 DF, Q4D
     Route: 062
     Dates: start: 20140219
  3. CINNAMON. [Concomitant]
     Active Substance: CINNAMON
     Indication: GLUCOSE TOLERANCE IMPAIRED
     Dosage: UNK, UNKNOWN
  4. HORSE CHESTNUT [Concomitant]
     Active Substance: HORSE CHESTNUT
     Indication: PROMOTION OF PERIPHERAL CIRCULATION
     Dosage: UNK, UNKNOWN
  5. SYNTHROID [Concomitant]
     Active Substance: LEVOTHYROXINE SODIUM
     Indication: HYPOTHYROIDISM
     Dosage: UNK, UNKNOWN
  6. LEVOTHYROXINE SODIUM. [Concomitant]
     Active Substance: LEVOTHYROXINE SODIUM
     Indication: HYPOTHYROIDISM
     Dosage: UNK, UNKNOWN
  7. RESTASIS [Concomitant]
     Active Substance: CYCLOSPORINE
     Indication: DRY EYE
     Dosage: UNK, UNKNOWN

REACTIONS (3)
  - Off label use [Unknown]
  - Product adhesion issue [Unknown]
  - Drug effect decreased [Unknown]

NARRATIVE: CASE EVENT DATE: 2014
